FAERS Safety Report 20388274 (Version 4)
Quarter: 2022Q2

REPORT INFORMATION
  Report Type: Other
  Country: CA (occurrence: CA)
  Receive Date: 20220128
  Receipt Date: 20220520
  Transmission Date: 20220721
  Serious: Yes (Hospitalization, Other)
  Sender: FDA-Public Use
  Company Number: CA-APOTEX-2022AP002316

PATIENT
  Age: 46 Year
  Sex: Female

DRUGS (24)
  1. CETIRIZINE [Suspect]
     Active Substance: CETIRIZINE HYDROCHLORIDE
     Indication: Product used for unknown indication
     Dosage: 10 MILLIGRAM, QD
     Route: 065
  2. HYDROXYZINE [Suspect]
     Active Substance: HYDROXYZINE HYDROCHLORIDE
     Indication: Product used for unknown indication
     Dosage: 25 MILLIGRAM, TID
     Route: 065
  3. HYDROXYZINE [Suspect]
     Active Substance: HYDROXYZINE HYDROCHLORIDE
     Dosage: 75 MILLIGRAM, QD
     Route: 065
  4. MONTELUKAST [Suspect]
     Active Substance: MONTELUKAST SODIUM
     Indication: Product used for unknown indication
     Dosage: 10 MILLIGRAM, QD
     Route: 065
  5. RANITIDINE [Suspect]
     Active Substance: RANITIDINE
     Indication: Product used for unknown indication
     Dosage: 150 MILLIGRAM, BID
     Route: 065
  6. RANITIDINE [Suspect]
     Active Substance: RANITIDINE
     Dosage: 300 MILLIGRAM, QD
     Route: 065
  7. PREDNISONE [Suspect]
     Active Substance: PREDNISONE
     Indication: Product used for unknown indication
     Dosage: UNK
     Route: 065
  8. BILASTINE [Suspect]
     Active Substance: BILASTINE
     Indication: Chronic spontaneous urticaria
     Dosage: 1 DOSAGE FORM, QD
     Route: 048
  9. BILASTINE [Suspect]
     Active Substance: BILASTINE
     Dosage: 2 MILLIGRAM, BID
     Route: 065
  10. CLARITIN [Suspect]
     Active Substance: LORATADINE
     Indication: Chronic spontaneous urticaria
     Dosage: 4 DOSAGE FORM, QD
     Route: 048
  11. CLARITIN [Suspect]
     Active Substance: LORATADINE
     Dosage: 1 DOSAGE FORM, QD
     Route: 048
  12. OMALIZUMAB [Suspect]
     Active Substance: OMALIZUMAB
     Indication: Chronic spontaneous urticaria
     Dosage: 300 MILLIGRAM, Q.M.T.
     Route: 065
  13. OMALIZUMAB [Suspect]
     Active Substance: OMALIZUMAB
     Indication: Urticaria
     Dosage: 450 MILLIGRAM, Q.M.T.
     Route: 058
  14. OMALIZUMAB [Suspect]
     Active Substance: OMALIZUMAB
     Dosage: 300 MILLIGRAM, Q.M.T.
     Route: 058
  15. OMALIZUMAB [Suspect]
     Active Substance: OMALIZUMAB
     Dosage: UNK
     Route: 065
  16. OMALIZUMAB [Suspect]
     Active Substance: OMALIZUMAB
     Dosage: 300 UNK
     Route: 065
  17. RUPATADINE FUMARATE [Suspect]
     Active Substance: RUPATADINE FUMARATE
     Indication: Chronic spontaneous urticaria
     Dosage: 1 DOSAGE FORM, BID
     Route: 048
  18. RUPATADINE FUMARATE [Suspect]
     Active Substance: RUPATADINE FUMARATE
     Dosage: 2 DOSAGE FORM, QD
     Route: 065
  19. XOLAIR [Suspect]
     Active Substance: OMALIZUMAB
     Indication: Chronic spontaneous urticaria
     Dosage: 300 MILLIGRAM, Q.M.T.
     Route: 058
  20. BILASTINE [Suspect]
     Active Substance: BILASTINE
     Indication: Chronic spontaneous urticaria
     Dosage: 1 DOSAGE FORM, QD
     Route: 048
  21. CYCLOSPORINE [Concomitant]
     Active Substance: CYCLOSPORINE
     Indication: Chronic spontaneous urticaria
     Dosage: 1 DOSAGE FORM
     Route: 048
  22. HYDROXYZINE [Concomitant]
     Active Substance: HYDROXYZINE HYDROCHLORIDE
     Indication: Chronic spontaneous urticaria
     Dosage: 1 DOSAGE FORM
     Route: 065
  23. PREDNISONE [Concomitant]
     Active Substance: PREDNISONE
     Indication: Chronic spontaneous urticaria
     Dosage: UNK
     Route: 048
  24. ATARAX [Concomitant]
     Active Substance: HYDROXYZINE HYDROCHLORIDE
     Indication: Product used for unknown indication
     Dosage: UNK
     Route: 065

REACTIONS (25)
  - Abdominal pain [Not Recovered/Not Resolved]
  - Adverse drug reaction [Not Recovered/Not Resolved]
  - Drug intolerance [Not Recovered/Not Resolved]
  - Emotional disorder [Not Recovered/Not Resolved]
  - Frustration tolerance decreased [Not Recovered/Not Resolved]
  - Heart rate increased [Not Recovered/Not Resolved]
  - Incorrect dose administered [Not Recovered/Not Resolved]
  - Insomnia [Not Recovered/Not Resolved]
  - Lacrimation increased [Not Recovered/Not Resolved]
  - Mouth ulceration [Not Recovered/Not Resolved]
  - Pain in extremity [Not Recovered/Not Resolved]
  - Pruritus [Not Recovered/Not Resolved]
  - Sedation [Not Recovered/Not Resolved]
  - Urticaria [Not Recovered/Not Resolved]
  - Angioedema [Not Recovered/Not Resolved]
  - Swollen tongue [Not Recovered/Not Resolved]
  - Swelling face [Not Recovered/Not Resolved]
  - Lip swelling [Not Recovered/Not Resolved]
  - Gait disturbance [Not Recovered/Not Resolved]
  - Grip strength decreased [Not Recovered/Not Resolved]
  - Pain [Not Recovered/Not Resolved]
  - Headache [Not Recovered/Not Resolved]
  - Fatigue [Not Recovered/Not Resolved]
  - Arthralgia [Not Recovered/Not Resolved]
  - Drug ineffective [Not Recovered/Not Resolved]
